FAERS Safety Report 4768913-9 (Version None)
Quarter: 2005Q3

REPORT INFORMATION
  Report Type: 
  Country: None (occurrence: None)
  Receive Date: 20050914
  Receipt Date: 20050817
  Transmission Date: 20060218
  Serious: Yes (Hospitalization)
  Sender: FDA-Public Use
  Company Number: 087-05

PATIENT
  Age: 48 Year
  Sex: Female

DRUGS (1)
  1. DEXTROAMPHETAMINE AND AMPHETAMINE MIXED SALTS, XR CAPSULES, 30MG [Suspect]

REACTIONS (8)
  - BLOOD PRESSURE SYSTOLIC INCREASED [None]
  - CHEST PAIN [None]
  - HEADACHE [None]
  - HEART RATE INCREASED [None]
  - INSOMNIA [None]
  - NAUSEA [None]
  - PHOTOSENSITIVITY REACTION [None]
  - RESPIRATORY RATE INCREASED [None]
